FAERS Safety Report 10886076 (Version 2)
Quarter: 2015Q2

REPORT INFORMATION
  Report Type: Spontaneous
  Country: US (occurrence: US)
  Receive Date: 20150304
  Receipt Date: 20150617
  Transmission Date: 20150821
  Serious: Yes (Life-Threatening, Hospitalization, Congenital Anomaly, Other)
  Sender: FDA-Public Use
  Company Number: US-ELI_LILLY_AND_COMPANY-US201502007707

PATIENT

DRUGS (1)
  1. PROZAC [Suspect]
     Active Substance: FLUOXETINE HYDROCHLORIDE
     Indication: PRODUCT USED FOR UNKNOWN INDICATION
     Dosage: 1 DF, UNKNOWN
     Route: 064

REACTIONS (11)
  - Pulmonary hypertension [Unknown]
  - Cardiomegaly [Unknown]
  - Foetal exposure during pregnancy [Recovered/Resolved]
  - Haemangioma congenital [Unknown]
  - Pneumonia aspiration [Unknown]
  - Atrial septal defect [Unknown]
  - Mitral valve incompetence [Unknown]
  - Cardiac failure [Unknown]
  - Cardiomyopathy [Unknown]
  - Laryngomalacia [Unknown]
  - Premature baby [Unknown]
